FAERS Safety Report 17960672 (Version 9)
Quarter: 2021Q4

REPORT INFORMATION
  Report Type: Report from Study
  Country: JP (occurrence: JP)
  Receive Date: 20200630
  Receipt Date: 20211029
  Transmission Date: 20220303
  Serious: Yes (Death, Hospitalization, Other)
  Sender: FDA-Public Use
  Company Number: NVSJ2020JP005899

PATIENT
  Age: 81 Year
  Sex: Female

DRUGS (10)
  1. TAFINLAR [Suspect]
     Active Substance: DABRAFENIB MESYLATE
     Indication: Non-small cell lung cancer
     Dosage: 300 MG
     Route: 048
     Dates: start: 20190108, end: 20190205
  2. TAFINLAR [Suspect]
     Active Substance: DABRAFENIB MESYLATE
     Dosage: 300 MG
     Route: 048
     Dates: start: 20190213, end: 20190305
  3. TAFINLAR [Suspect]
     Active Substance: DABRAFENIB MESYLATE
     Dosage: 300 MG
     Route: 048
     Dates: start: 20190313, end: 20190710
  4. TAFINLAR [Suspect]
     Active Substance: DABRAFENIB MESYLATE
     Dosage: 300 MG
     Route: 048
     Dates: start: 20190723, end: 20190924
  5. TAFINLAR [Suspect]
     Active Substance: DABRAFENIB MESYLATE
     Dosage: ALTERNATE-DAY ADMINISTRATION
     Route: 065
  6. MEKINIST [Suspect]
     Active Substance: TRAMETINIB DIMETHYL SULFOXIDE
     Indication: Non-small cell lung cancer
     Dosage: 2 MG
     Route: 048
     Dates: start: 20190108, end: 20190205
  7. MEKINIST [Suspect]
     Active Substance: TRAMETINIB DIMETHYL SULFOXIDE
     Dosage: 2 MG
     Route: 048
     Dates: start: 20190213, end: 20190305
  8. MEKINIST [Suspect]
     Active Substance: TRAMETINIB DIMETHYL SULFOXIDE
     Dosage: 2 MG
     Route: 048
     Dates: start: 20190313, end: 20190710
  9. MEKINIST [Suspect]
     Active Substance: TRAMETINIB DIMETHYL SULFOXIDE
     Dosage: 2 MG
     Route: 048
     Dates: start: 20190723, end: 20190924
  10. MEKINIST [Suspect]
     Active Substance: TRAMETINIB DIMETHYL SULFOXIDE
     Dosage: ALTERNATE-DAY ADMINISTRATION
     Route: 065

REACTIONS (33)
  - General physical health deterioration [Fatal]
  - Non-small cell lung cancer [Fatal]
  - Malignant neoplasm progression [Fatal]
  - Infection [Not Recovered/Not Resolved]
  - Pyrexia [Unknown]
  - C-reactive protein increased [Unknown]
  - Sepsis [Recovering/Resolving]
  - White blood cell count increased [Unknown]
  - C-reactive protein increased [Unknown]
  - Blood beta-D-glucan positive [Unknown]
  - Gastric ulcer [Recovering/Resolving]
  - Faeces discoloured [Recovering/Resolving]
  - Pain [Recovering/Resolving]
  - Dyspnoea [Not Recovered/Not Resolved]
  - Pleural effusion [Recovering/Resolving]
  - Renal impairment [Not Recovered/Not Resolved]
  - Urine output decreased [Not Recovered/Not Resolved]
  - Pyrexia [Unknown]
  - Oedema [Unknown]
  - Blood creatine phosphokinase increased [Recovered/Resolved]
  - Anaemia [Not Recovered/Not Resolved]
  - Metastases to spine [Not Recovered/Not Resolved]
  - Metastases to bone [Not Recovered/Not Resolved]
  - Blood creatine phosphokinase increased [Recovered/Resolved]
  - Stomatitis [Recovered/Resolved]
  - Pharyngitis [Recovering/Resolving]
  - Constipation [Not Recovered/Not Resolved]
  - Hypoaesthesia [Not Recovered/Not Resolved]
  - Pain in extremity [Not Recovered/Not Resolved]
  - Procedural pain [Unknown]
  - Cough [Unknown]
  - Hypotension [Recovering/Resolving]
  - Inappropriate schedule of product administration [Unknown]

NARRATIVE: CASE EVENT DATE: 20190129
